FAERS Safety Report 14858560 (Version 1)
Quarter: 2018Q2

REPORT INFORMATION
  Report Type: Spontaneous
  Country: FR (occurrence: FR)
  Receive Date: 20180508
  Receipt Date: 20180508
  Transmission Date: 20180711
  Serious: Yes (Other)
  Sender: FDA-Public Use
  Company Number: FR-MERCK KGAA-2047365

PATIENT
  Age: 50 Year
  Sex: Female

DRUGS (1)
  1. NOVOTHYROX [Suspect]
     Active Substance: LEVOTHYROXINE SODIUM
     Indication: HYPOTHYROIDISM
     Dates: start: 201708

REACTIONS (21)
  - Diplopia [None]
  - Alopecia [None]
  - Psychiatric symptom [None]
  - Visual impairment [None]
  - Dyspnoea [None]
  - Pain [None]
  - Fatigue [None]
  - Apathy [None]
  - Arrhythmia [None]
  - Sleep disorder [None]
  - Gait disturbance [None]
  - Somnolence [None]
  - Dry skin [None]
  - Asthenia [None]
  - Blood alkaline phosphatase decreased [None]
  - Gait disturbance [None]
  - Weight increased [None]
  - Myalgia [None]
  - Epistaxis [None]
  - Agitation [None]
  - Pain in extremity [None]

NARRATIVE: CASE EVENT DATE: 2017
